FAERS Safety Report 14665278 (Version 12)
Quarter: 2019Q3

REPORT INFORMATION
  Report Type: Spontaneous
  Country: CA (occurrence: CA)
  Receive Date: 20180321
  Receipt Date: 20190704
  Transmission Date: 20191004
  Serious: Yes (Other)
  Sender: FDA-Public Use
  Company Number: CA-CELLTRION INC.-2018CA017745

PATIENT

DRUGS (14)
  1. INFLECTRA [Suspect]
     Active Substance: INFLIXIMAB-DYYB
     Dosage: 450 MG, EVERY 7 WEEKS
     Route: 042
     Dates: start: 20181205
  2. INFLECTRA [Suspect]
     Active Substance: INFLIXIMAB-DYYB
     Dosage: 450 MG, EVERY 0, 2, 6 WEEKS AND THEN EVERY 8 WEEKS
     Route: 042
     Dates: start: 20180308
  3. INFLECTRA [Suspect]
     Active Substance: INFLIXIMAB-DYYB
     Dosage: 450 MG, EVERY 0, 2, 6 WEEKS AND THEN EVERY 8 WEEKS
     Route: 042
     Dates: start: 20180821
  4. INFLECTRA [Suspect]
     Active Substance: INFLIXIMAB-DYYB
     Dosage: 450 MG, EVERY 0, 2, 6 WEEKS AND THEN EVERY 8 WEEKS
     Route: 042
     Dates: start: 20181017
  5. INFLECTRA [Suspect]
     Active Substance: INFLIXIMAB-DYYB
     Dosage: 450 MG, EVERY 7 WEEKS
     Route: 042
     Dates: start: 20190619
  6. INFLECTRA [Suspect]
     Active Substance: INFLIXIMAB-DYYB
     Dosage: 450 MG, EVERY 7 WEEKS
     Route: 042
     Dates: start: 20190313
  7. METHOTREXATE. [Concomitant]
     Active Substance: METHOTREXATE
     Indication: RHEUMATOID ARTHRITIS
     Dosage: UNK
     Dates: start: 1988
  8. INFLECTRA [Suspect]
     Active Substance: INFLIXIMAB-DYYB
     Indication: COLITIS ULCERATIVE
     Dosage: 450 MG, EVERY 0, 2, 6 WEEKS AND THEN EVERY 8 WEEKS
     Route: 042
     Dates: start: 20180123
  9. INFLECTRA [Suspect]
     Active Substance: INFLIXIMAB-DYYB
     Indication: RHEUMATOID ARTHRITIS
     Dosage: 450 MG, EVERY 0, 2, 6 WEEKS, THEN EVERY 8 WEEKS
     Route: 042
     Dates: start: 20180208
  10. CELEBREX [Concomitant]
     Active Substance: CELECOXIB
     Indication: ARTHRALGIA
     Dosage: 200 MG (1 TABLET), UNK
     Route: 048
  11. INFLECTRA [Suspect]
     Active Substance: INFLIXIMAB-DYYB
     Dosage: 450 MG, EVERY 0, 2, 6 WEEKS AND THEN EVERY 8 WEEKS
     Route: 042
     Dates: start: 20180626
  12. INFLECTRA [Suspect]
     Active Substance: INFLIXIMAB-DYYB
     Dosage: 450 MG, EVERY 7 WEEKS
     Route: 042
     Dates: start: 20190123
  13. INFLECTRA [Suspect]
     Active Substance: INFLIXIMAB-DYYB
     Dosage: 450 MG, EVERY 7 WEEKS
     Route: 042
     Dates: start: 20190501
  14. METHOTREXATE. [Concomitant]
     Active Substance: METHOTREXATE
     Indication: RHEUMATOID ARTHRITIS

REACTIONS (13)
  - Rectal haemorrhage [Not Recovered/Not Resolved]
  - Blood pressure fluctuation [Unknown]
  - Fatigue [Not Recovered/Not Resolved]
  - Hypertension [Not Recovered/Not Resolved]
  - Nausea [Recovered/Resolved]
  - Product use issue [Unknown]
  - Therapeutic product effect incomplete [Recovering/Resolving]
  - Malaise [Unknown]
  - Product use issue [Unknown]
  - Off label use [Unknown]
  - Off label use [Unknown]
  - Condition aggravated [Not Recovered/Not Resolved]
  - Mucous stools [Unknown]

NARRATIVE: CASE EVENT DATE: 201801
